FAERS Safety Report 8935199 (Version 1)
Quarter: 2012Q4

REPORT INFORMATION
  Report Type: 
  Country: NO (occurrence: NO)
  Receive Date: 20121129
  Receipt Date: 20121129
  Transmission Date: 20130627
  Serious: Yes (Hospitalization, Other)
  Sender: FDA-Public Use
  Company Number: PHHY2012NO107996

PATIENT
  Sex: Female

DRUGS (7)
  1. METHOTREXATE [Suspect]
     Indication: RHEUMATOID ARTHRITIS
     Dosage: 15 mg, daily
     Dates: start: 2003, end: 201210
  2. SELEXID [Interacting]
     Indication: URINARY TRACT INFECTION
     Dosage: 600 mg, daily
     Dates: start: 20121012, end: 201210
  3. ADALAT OROS [Concomitant]
  4. SELO-ZOK [Concomitant]
  5. FOLIC ACID [Concomitant]
     Dates: end: 201210
  6. LIPITOR [Concomitant]
  7. NAPROXEN [Concomitant]

REACTIONS (11)
  - Respiratory failure [Recovering/Resolving]
  - Listless [Unknown]
  - Hypoxia [Unknown]
  - Hyperventilation [Unknown]
  - Pulmonary toxicity [Unknown]
  - Interstitial lung disease [Recovering/Resolving]
  - Dyspnoea [Recovering/Resolving]
  - Pyrexia [Recovered/Resolved]
  - Chills [Unknown]
  - Transaminases increased [Unknown]
  - Drug interaction [Unknown]
